FAERS Safety Report 9901076 (Version 1)
Quarter: 2014Q1

REPORT INFORMATION
  Report Type: Spontaneous
  Country: US (occurrence: US)
  Receive Date: 20140217
  Receipt Date: 20140217
  Transmission Date: 20141002
  Serious: No
  Sender: FDA-Public Use
  Company Number: US-PFIZER INC-2014041920

PATIENT
  Sex: Female

DRUGS (1)
  1. METHOTREXATE SODIUM [Suspect]
     Indication: RHEUMATOID ARTHRITIS
     Dosage: UNK
     Dates: start: 1995

REACTIONS (3)
  - Oral mucosal blistering [Unknown]
  - Stomatitis [Unknown]
  - Drug intolerance [Unknown]
